FAERS Safety Report 8131080-8 (Version None)
Quarter: 2012Q1

REPORT INFORMATION
  Report Type: 
  Country: None (occurrence: None)
  Receive Date: 20120207
  Receipt Date: 20120127
  Transmission Date: 20120608
  Serious: Yes (Hospitalization)
  Sender: FDA-Public Use
  Company Number: DSA_54873_2012

PATIENT
  Age: 7 Year
  Sex: Male

DRUGS (1)
  1. DILTIAZEM HYDROCHLORIDE [Suspect]
     Indication: ACCIDENTAL DRUG INTAKE BY CHILD
     Dosage: (ONCE (NOT THE PRESCRIBED AMOUNT) ORAL)
     Route: 048

REACTIONS (12)
  - SOMNOLENCE [None]
  - MENTAL IMPAIRMENT [None]
  - SHOCK [None]
  - VOMITING [None]
  - RENAL FAILURE ACUTE [None]
  - NODAL RHYTHM [None]
  - MULTI-ORGAN DISORDER [None]
  - MUCOSAL DRYNESS [None]
  - CONFUSIONAL STATE [None]
  - RESPIRATORY RATE INCREASED [None]
  - HYPERGLYCAEMIA [None]
  - TREMOR [None]
